FAERS Safety Report 5268069-2 (Version None)
Quarter: 2007Q1

REPORT INFORMATION
  Report Type: 
  Country: None (occurrence: None)
  Receive Date: 20070319
  Receipt Date: 20070308
  Transmission Date: 20070707
  Serious: Yes (Other)
  Sender: FDA-Public Use
  Company Number: FR-BAYER-200710150BFR

PATIENT
  Age: 50 Year
  Sex: Male
  Weight: 63 kg

DRUGS (2)
  1. SORAFENIB [Suspect]
     Indication: CARCINOID TUMOUR OF THE SMALL BOWEL
     Route: 048
     Dates: start: 20060209
  2. DACARBAZINE [Suspect]
     Indication: CARCINOID TUMOUR OF THE SMALL BOWEL
     Route: 042
     Dates: start: 20060209, end: 20060504

REACTIONS (1)
  - MALIGNANT MELANOMA [None]
